FAERS Safety Report 15724138 (Version 4)
Quarter: 2019Q2

REPORT INFORMATION
  Report Type: Report from Study
  Country: DE (occurrence: DE)
  Receive Date: 20181214
  Receipt Date: 20190409
  Transmission Date: 20190711
  Serious: Yes (Life-Threatening, Hospitalization)
  Sender: FDA-Public Use
  Company Number: DE-AMGEN-DEUNI2018177920

PATIENT
  Age: 67 Year
  Sex: Female
  Weight: 48 kg

DRUGS (21)
  1. ONDANSETRON B. BRAUN [Concomitant]
     Indication: NAUSEA
     Dosage: 8 MILLIGRAM, AS NECESSARY
     Route: 048
     Dates: start: 20180620
  2. FLUOROURACIL. [Suspect]
     Active Substance: FLUOROURACIL
     Dosage: 2289 MILLIGRAM, UNK
     Route: 042
     Dates: start: 20180620
  3. FLUOROURACIL. [Suspect]
     Active Substance: FLUOROURACIL
     Dosage: 2217 MILLIGRAM, UNK
     Route: 042
     Dates: start: 20180815
  4. IRINOTECAN [Suspect]
     Active Substance: IRINOTECAN
     Dosage: 166 MILLIGRAM, UNK
     Route: 065
     Dates: start: 20180815
  5. DOXYDERMA [Concomitant]
     Indication: RASH
     Dosage: 2.5 MILLIGRAM, AS NECESSARY
     Route: 061
     Dates: start: 20180620
  6. PANITUMUMAB [Suspect]
     Active Substance: PANITUMUMAB
     Dosage: 288 MILLIGRAM, UNK
     Route: 042
     Dates: start: 20180919
  7. FOLINIC ACID [Suspect]
     Active Substance: LEUCOVORIN
     Indication: COLORECTAL CANCER METASTATIC
     Dosage: 381 MILLIGRAM, UNK
     Route: 065
     Dates: start: 20180620
  8. FLUOROURACIL. [Suspect]
     Active Substance: FLUOROURACIL
     Dosage: 369 MILLIGRAM, UNK
     Route: 040
     Dates: start: 20180815
  9. DEXA [Concomitant]
     Indication: NAUSEA
     Dosage: 8 MILLIGRAM, PC
     Route: 042
     Dates: start: 20180620
  10. ATROPINUM SULFURICUM [Concomitant]
     Indication: MUSCLE SPASMS
     Dosage: 0.25 MILLIGRAM, PC
     Route: 058
     Dates: start: 20180620
  11. FLUOROURACIL. [Suspect]
     Active Substance: FLUOROURACIL
     Indication: COLORECTAL CANCER METASTATIC
     Dosage: 381 MILLIGRAM, UNK
     Route: 040
     Dates: start: 20180620
  12. IRINOTECAN [Suspect]
     Active Substance: IRINOTECAN
     Indication: COLORECTAL CANCER METASTATIC
     Dosage: 171 MILLIGRAM, UNK
     Route: 065
     Dates: start: 20180620
  13. DOXYCYCLIN-RATIOPHARM [Concomitant]
     Indication: RASH
     Dosage: 50 MILLIGRAM, QD
     Route: 048
     Dates: start: 20180620
  14. CALCIUMACETAT-NEFRO [Concomitant]
     Indication: NEPHROPATHY
     Dosage: 500 MG, QID
     Route: 048
     Dates: start: 20000101
  15. PANITUMUMAB [Suspect]
     Active Substance: PANITUMUMAB
     Indication: COLORECTAL CANCER METASTATIC
     Dosage: 288 MILLIGRAM, UNK
     Route: 042
     Dates: start: 20180620
  16. FOLINIC ACID [Suspect]
     Active Substance: LEUCOVORIN
     Dosage: 369 MILLIGRAM, UNK
     Route: 065
     Dates: start: 20180815
  17. BICANORM [Concomitant]
     Active Substance: SODIUM BICARBONATE
     Indication: NEPHROPATHY
     Dosage: 5 MILLIGRAM, QD
     Route: 048
     Dates: start: 20000101
  18. ONDANSETRON BETA [Concomitant]
     Indication: NAUSEA
     Dosage: 8 MILLIGRAM, PC
     Route: 042
     Dates: start: 20180620
  19. LOPERAMIDE RATIOPHARM [Concomitant]
     Active Substance: LOPERAMIDE HYDROCHLORIDE
     Indication: DIARRHOEA
     Dosage: 10 MILLIGRAM, AS NECESSARY
     Route: 048
     Dates: start: 20180620
  20. PANITUMUMAB [Suspect]
     Active Substance: PANITUMUMAB
     Dosage: 270 MILLIGRAM, UNK
     Route: 042
     Dates: start: 20180815
  21. EMEND [Concomitant]
     Active Substance: APREPITANT
     Indication: NAUSEA
     Dosage: 125 MILLIGRAM, PC
     Route: 048
     Dates: start: 20180704

REACTIONS (1)
  - Mental impairment [Not Recovered/Not Resolved]

NARRATIVE: CASE EVENT DATE: 20180924
